FAERS Safety Report 9306760 (Version 4)
Quarter: 2014Q3

REPORT INFORMATION
  Report Type: Report from Study
  Country: US (occurrence: US)
  Receive Date: 20130523
  Receipt Date: 20140904
  Transmission Date: 20150326
  Serious: No
  Sender: FDA-Public Use
  Company Number: US-ALEXION-A201301004

PATIENT

DRUGS (1)
  1. SOLIRIS [Suspect]
     Active Substance: ECULIZUMAB
     Indication: HAEMOLYTIC URAEMIC SYNDROME
     Dosage: UNK
     Route: 042

REACTIONS (7)
  - Pyrexia [Unknown]
  - Chest pain [Unknown]
  - Insomnia [Unknown]
  - Bone marrow disorder [Unknown]
  - Pain [Unknown]
  - Abdominal pain [Unknown]
  - Haemoptysis [Unknown]
